FAERS Safety Report 11925300 (Version 1)
Quarter: 2016Q1

REPORT INFORMATION
  Report Type: Spontaneous
  Country: US (occurrence: US)
  Receive Date: 20160118
  Receipt Date: 20160118
  Transmission Date: 20160526
  Serious: No
  Sender: FDA-Public Use
  Company Number: US-BAYER-2016-007771

PATIENT
  Age: 80 Year
  Sex: Male
  Weight: 75.74 kg

DRUGS (1)
  1. CLARITIN REDITABS [Suspect]
     Active Substance: LORATADINE
     Indication: INCREASED UPPER AIRWAY SECRETION
     Dosage: 1 DF, QD
     Route: 048

REACTIONS (1)
  - Circumstance or information capable of leading to medication error [None]
